FAERS Safety Report 24580345 (Version 1)
Quarter: 2024Q4

REPORT INFORMATION
  Report Type: Spontaneous
  Country: US (occurrence: US)
  Receive Date: 20241105
  Receipt Date: 20241105
  Transmission Date: 20250114
  Serious: Yes (Other)
  Sender: AMGEN
  Company Number: US-AMGEN-USASP2024215469

PATIENT
  Sex: Female

DRUGS (1)
  1. PROLIA [Suspect]
     Active Substance: DENOSUMAB
     Indication: Product used for unknown indication
     Dosage: UNK
     Route: 065
     Dates: start: 2022, end: 2024

REACTIONS (3)
  - Osteonecrosis of jaw [Recovered/Resolved]
  - Dental care [Recovered/Resolved]
  - Liver transplant [Unknown]

NARRATIVE: CASE EVENT DATE: 20230101
